FAERS Safety Report 8816806 (Version 1)
Quarter: 2012Q4

REPORT INFORMATION
  Report Type: Spontaneous
  Country: JP (occurrence: None)
  Receive Date: 20121001
  Receipt Date: 20121001
  Transmission Date: 20130627
  Serious: Yes (Other)
  Sender: FDA-Public Use
  Company Number: 2010JP005770

PATIENT
  Age: 9 Month
  Sex: Female
  Weight: 6.1 kg

DRUGS (10)
  1. PROGRAF [Suspect]
     Indication: PROPHYLAXIS AGAINST GRAFT VERSUS HOST DISEASE
     Dosage: 0.3 MG, UID/QD, ORAL
     Route: 048
     Dates: start: 20090702, end: 20091125
  2. FUNGUARD (MICAFUNGIN) [Concomitant]
  3. MEROPEN (MEROPENEM TRIHYDRATE) [Concomitant]
  4. BAKTAR (SULFAMETHOXAZOLE, TRIMETHOPRIM) [Concomitant]
  5. ZOVIRAX (ACICLOVIR) [Concomitant]
  6. POLYMYXIN (POLYMYXIN B SULFATE) [Concomitant]
  7. CELLCEPT (MYCOPHENOLATE MOFETIL) [Concomitant]
  8. METHYLPREDNISOLONE (METHYLPREDNISOLONE) [Concomitant]
  9. CYCLOPHOSPHAMIDE (CYCLOPHOSPHAMIDE) [Concomitant]
  10. FLUDARABINE (FLUDARABINE) [Concomitant]

REACTIONS (4)
  - Gastroenteritis eosinophilic [None]
  - Drug ineffective [None]
  - Milk allergy [None]
  - Acute graft versus host disease [None]
